FAERS Safety Report 10067848 (Version 1)
Quarter: 2014Q2

REPORT INFORMATION
  Report Type: Spontaneous
  Country: US (occurrence: None)
  Receive Date: 20140407
  Receipt Date: 20140407
  Transmission Date: 20141212
  Serious: Yes (Life-Threatening, Other)
  Sender: FDA-Public Use
  Company Number: AUR-APL-2014-04082

PATIENT
  Age: 44 Year
  Sex: Male
  Weight: 72.6 kg

DRUGS (17)
  1. ATENOLOL (ATENOLOL) [Suspect]
     Indication: BLOOD PRESSURE
     Dosage: 1 D
     Dates: start: 1990
  2. LISINOPRIL (LISINOPRIL) [Suspect]
     Indication: BLOOD PRESSURE
     Dosage: 1 D
     Route: 048
     Dates: start: 2009
  3. LISINOPRIL + HYDROCHLOROTHIAZIDE [Suspect]
     Indication: PRODUCT USED FOR UNKNOWN INDICATION
     Route: 048
  4. SEROQUEL (QUETIAPINE FUMARATE) [Suspect]
     Indication: BIPOLAR DISORDER
     Route: 048
     Dates: start: 1997
  5. LITHIUM [Concomitant]
  6. HYDROCODONE W/ACETAMINOPHEN [Concomitant]
  7. CYMBALTA [Concomitant]
  8. PROTONIX [Concomitant]
  9. CLONOPIN [Concomitant]
  10. FIORICET [Concomitant]
  11. TRAZODONE [Concomitant]
  12. DEPAKOTE [Concomitant]
  13. HYDROCODONE [Concomitant]
  14. PERCOCET [Concomitant]
  15. LASIX [Concomitant]
  16. SLONOPIN [Concomitant]
  17. TIZANIDINE [Concomitant]

REACTIONS (19)
  - Off label use [None]
  - Hypertension [None]
  - Apnoea [None]
  - Catatonia [None]
  - Psychomotor hyperactivity [None]
  - Crying [None]
  - Memory impairment [None]
  - Amnesia [None]
  - Mood swings [None]
  - Intentional product misuse [None]
  - Agoraphobia [None]
  - Vomiting [None]
  - Insomnia [None]
  - Decreased appetite [None]
  - Hallucination [None]
  - Weight decreased [None]
  - Suicidal ideation [None]
  - Feeling abnormal [None]
  - Dysgeusia [None]
